FAERS Safety Report 23288656 (Version 5)
Quarter: 2025Q1

REPORT INFORMATION
  Report Type: Spontaneous
  Country: US (occurrence: US)
  Receive Date: 20231212
  Receipt Date: 20250307
  Transmission Date: 20250408
  Serious: No
  Sender: SANOFI AVENTIS
  Company Number: US-SA-SAC20231205000861

PATIENT
  Age: 2 Year
  Sex: Female

DRUGS (2)
  1. DUPIXENT [Suspect]
     Active Substance: DUPILUMAB
     Indication: Dermatitis atopic
     Dosage: 300 MG, Q4W
     Route: 058
     Dates: start: 20231113, end: 20240615
  2. DUPIXENT [Suspect]
     Active Substance: DUPILUMAB
     Indication: Eczema
     Dosage: 300 MG, Q3W
     Route: 058
     Dates: start: 20240615

REACTIONS (10)
  - Molluscum contagiosum [Unknown]
  - Rash [Unknown]
  - Condition aggravated [Unknown]
  - Eczema [Unknown]
  - Rash macular [Unknown]
  - Condition aggravated [Unknown]
  - Skin discolouration [Unknown]
  - Dry skin [Unknown]
  - Off label use [Unknown]
  - Muscle spasms [Unknown]

NARRATIVE: CASE EVENT DATE: 20231101
